FAERS Safety Report 9465738 (Version 1)
Quarter: 2013Q3

REPORT INFORMATION
  Report Type: Spontaneous
  Country: US (occurrence: US)
  Receive Date: 20130820
  Receipt Date: 20130820
  Transmission Date: 20140515
  Serious: No
  Sender: FDA-Public Use
  Company Number: US-ASTELLAS-2013US007420

PATIENT
  Sex: Male

DRUGS (1)
  1. AMBISOME [Suspect]
     Indication: PRODUCT USED FOR UNKNOWN INDICATION
     Dosage: 50 MG, UID/QD
     Route: 065
     Dates: start: 20130708

REACTIONS (1)
  - Incorrect product storage [Unknown]
